FAERS Safety Report 9199100 (Version 2)
Quarter: 2013Q2

REPORT INFORMATION
  Report Type: Spontaneous
  Country: US (occurrence: None)
  Receive Date: 20130325
  Receipt Date: 20130409
  Transmission Date: 20140414
  Serious: No
  Sender: FDA-Public Use
  Company Number: 2013US-004605

PATIENT
  Age: 75 Year
  Sex: Male
  Weight: 75.5 kg

DRUGS (15)
  1. OMONTYS [Suspect]
     Indication: NEPHROGENIC ANAEMIA
     Dosage: GIVEN 5 MG OF 8 MG
     Route: 042
     Dates: start: 20130218, end: 20130218
  2. CATAPRES (CLONIDINE) [Concomitant]
  3. ARICEPT (DONEPEZIL HYDROCHLORIDE) [Concomitant]
  4. HUMULIN N (INSULIN HUMAN INJECTION, ISOPHANE) [Concomitant]
  5. LASIX (FUROSEMIDE) [Concomitant]
  6. METOPROLOL (METOPROLOL) [Concomitant]
  7. NEPHROCAPS (ASCORBIC ACID, BIOTIN, CYANOCOBALAMIN, FOLIC ACID, NICOTINAMIDE, PANTOTHENIC ACID, PYRIDOXINE HYDROCHLORIDE, RIBOFLAVIN, THIAMINE HYDROCHLORIDE) [Concomitant]
  8. NOVOLOG (INSULIN ASPART) [Concomitant]
  9. PRILOSEC (OMEPRAZOLE) [Concomitant]
  10. SENSIPAR (CINACALCET HYDROCHLORIDE) [Concomitant]
  11. RENVELA (SEVELAMER CARBONATE) [Concomitant]
  12. ZOCOR (SIMVASTATIN) [Concomitant]
  13. ZEMPLAR (PARICALCITOL) [Concomitant]
  14. LIQUACEL [Concomitant]
  15. HEPARIN SODIUM (HEPARIN SODIUM) [Concomitant]

REACTIONS (4)
  - Pain in extremity [None]
  - Flushing [None]
  - Injection site pain [None]
  - Muscle spasms [None]
